FAERS Safety Report 5944440-8 (Version None)
Quarter: 2008Q4

REPORT INFORMATION
  Report Type: 
  Country: None (occurrence: None)
  Receive Date: 20081107
  Receipt Date: 20081104
  Transmission Date: 20090506
  Serious: Yes (Other)
  Sender: FDA-Public Use
  Company Number: FR-WYE-G02514108

PATIENT
  Sex: Female

DRUGS (2)
  1. ADVIL [Suspect]
     Indication: MYALGIA
     Dosage: 3 TABLETS TOTAL DAILY
     Route: 048
     Dates: start: 20081029, end: 20081101
  2. INFLUENSAVACCIN [Suspect]
     Indication: INFLUENZA IMMUNISATION
     Dates: start: 20081001, end: 20081001

REACTIONS (7)
  - EYE PAIN [None]
  - HERPES ZOSTER [None]
  - PAIN OF SKIN [None]
  - PHOTOPHOBIA [None]
  - RASH [None]
  - SKIN BURNING SENSATION [None]
  - SKIN PLAQUE [None]
